FAERS Safety Report 13360649 (Version 2)
Quarter: 2017Q2

REPORT INFORMATION
  Report Type: Report from Study
  Country: US (occurrence: US)
  Receive Date: 20170322
  Receipt Date: 20170509
  Transmission Date: 20170830
  Serious: Yes (Hospitalization)
  Sender: FDA-Public Use
  Company Number: US-ACTELION-A-US2017-151298

PATIENT
  Age: 51 Year
  Sex: Male
  Weight: 78.5 kg

DRUGS (5)
  1. WARFARIN [Concomitant]
     Active Substance: WARFARIN
  2. VELETRI [Suspect]
     Active Substance: EPOPROSTENOL
     Indication: PULMONARY ARTERIAL HYPERTENSION
     Dosage: 50 NG/KG, PER MIN
     Route: 042
  3. TRACLEER [Suspect]
     Active Substance: BOSENTAN
     Indication: PULMONARY ARTERIAL HYPERTENSION
     Dosage: 125 MG, BID
     Route: 048
  4. DILTIAZEM. [Concomitant]
     Active Substance: DILTIAZEM
  5. SILDENAFIL CITRATE. [Concomitant]
     Active Substance: SILDENAFIL CITRATE

REACTIONS (8)
  - Catheter site pruritus [Recovered/Resolved]
  - Pain in jaw [Unknown]
  - Catheter site erythema [Recovered/Resolved]
  - Flushing [Unknown]
  - Dyspnoea exertional [Unknown]
  - Diarrhoea [Unknown]
  - Device related infection [Recovered/Resolved]
  - Catheter site infection [Recovered/Resolved]
